FAERS Safety Report 4965046-3 (Version None)
Quarter: 2006Q2

REPORT INFORMATION
  Report Type: 
  Country: None (occurrence: None)
  Receive Date: 20060403
  Receipt Date: 20060327
  Transmission Date: 20061013
  Serious: Yes (Other)
  Sender: FDA-Public Use
  Company Number: CERZ-11019

PATIENT
  Age: 45 Year
  Sex: Female
  Weight: 50 kg

DRUGS (1)
  1. CEREZYME [Suspect]
     Indication: GAUCHER'S DISEASE
     Dosage: 3000 UNITS Q2WKS IV
     Route: 042
     Dates: start: 20050101

REACTIONS (3)
  - CHILLS [None]
  - HYPERTENSION [None]
  - TACHYCARDIA [None]
